FAERS Safety Report 7081099-3 (Version None)
Quarter: 2010Q4

REPORT INFORMATION
  Report Type: 
  Country: None (occurrence: None)
  Receive Date: 20101103
  Receipt Date: 20101028
  Transmission Date: 20110411
  Serious: Yes (Other)
  Sender: FDA-Public Use
  Company Number: A0873730A

PATIENT
  Age: 62 Year
  Sex: Male
  Weight: 83.2 kg

DRUGS (12)
  1. VOTRIENT [Suspect]
     Dosage: 800MG PER DAY
     Route: 048
     Dates: start: 20100521, end: 20101001
  2. COUMADIN [Concomitant]
  3. LYRICA [Concomitant]
  4. ASPIRIN [Concomitant]
  5. FLOMAX [Concomitant]
  6. CENTRUM SILVER [Concomitant]
  7. COLLOIDAL SILVER [Concomitant]
  8. SHARK CARTILAGE [Concomitant]
  9. HERBAL TEA [Concomitant]
  10. GRAPE SEED EXTRACT [Concomitant]
  11. COREG [Concomitant]
  12. PROSCAR [Concomitant]

REACTIONS (10)
  - ABDOMINAL DISTENSION [None]
  - ABDOMINAL PAIN [None]
  - ALANINE AMINOTRANSFERASE INCREASED [None]
  - ASPARTATE AMINOTRANSFERASE INCREASED [None]
  - DIARRHOEA [None]
  - DYSPNOEA [None]
  - HAIR COLOUR CHANGES [None]
  - HEPATIC ENZYME INCREASED [None]
  - POLLAKIURIA [None]
  - RASH PRURITIC [None]
